FAERS Safety Report 18253792 (Version 2)
Quarter: 2020Q3

REPORT INFORMATION
  Report Type: Spontaneous
  Country: UA (occurrence: UA)
  Receive Date: 20200910
  Receipt Date: 20200918
  Transmission Date: 20201103
  Serious: Yes (Other)
  Sender: FDA-Public Use
  Company Number: UA-ASTRAZENECA-2020SF12256

PATIENT
  Age: 14223 Day
  Sex: Male

DRUGS (5)
  1. SYMBICORT [Suspect]
     Active Substance: BUDESONIDE\FORMOTEROL FUMARATE DIHYDRATE
     Indication: ASTHMA
     Dosage: 160/4,5 MG UNKNOWN UNKNOWN
     Route: 055
     Dates: start: 20170301
  2. ACC [Concomitant]
     Active Substance: ACETYLCYSTEINE
  3. SUMAMED [Concomitant]
     Active Substance: AZITHROMYCIN ANHYDROUS
     Dosage: 500.0MG UNKNOWN
  4. CEFTRIAXONE. [Concomitant]
     Active Substance: CEFTRIAXONE
  5. PARACETAMOL [Concomitant]
     Active Substance: ACETAMINOPHEN
     Dosage: WHEN THE TEMPERATURE RISES, 500 MG

REACTIONS (1)
  - COVID-19 [Recovered/Resolved]

NARRATIVE: CASE EVENT DATE: 20200810
